FAERS Safety Report 5195953-0 (Version None)
Quarter: 2006Q4

REPORT INFORMATION
  Report Type: 
  Country: None (occurrence: None)
  Receive Date: 20061227
  Receipt Date: 20061208
  Transmission Date: 20070319
  Serious: Yes (Hospitalization, Other)
  Sender: FDA-Public Use
  Company Number: 13587506

PATIENT
  Sex: Female

DRUGS (4)
  1. EMSAM [Suspect]
     Indication: DEPRESSION
     Dosage: TD
     Route: 062
  2. VALIUM [Suspect]
  3. ALCOHOL [Suspect]
     Dosage: ORAL
     Route: 048
  4. TYRAMINE [Suspect]
     Dosage: ORAL
     Route: 048

REACTIONS (2)
  - HEPATIC FAILURE [None]
  - MULTIPLE DRUG OVERDOSE [None]
